FAERS Safety Report 4389100-2 (Version None)
Quarter: 2004Q2

REPORT INFORMATION
  Report Type: 
  Country: None (occurrence: None)
  Receive Date: 20040624
  Receipt Date: 20040617
  Transmission Date: 20050107
  Serious: Yes (Hospitalization, Other)
  Sender: FDA-Public Use
  Company Number: 2004206199US

PATIENT
  Age: 91 Year
  Sex: Female
  Weight: 50.8 kg

DRUGS (1)
  1. BEXTRA [Suspect]
     Indication: LOCALISED OSTEOARTHRITIS
     Dosage: 10 MG, QD,
     Dates: start: 20021101, end: 20040224

REACTIONS (2)
  - ANAEMIA [None]
  - LOSS OF CONSCIOUSNESS [None]
